FAERS Safety Report 12679916 (Version 3)
Quarter: 2016Q3

REPORT INFORMATION
  Report Type: Spontaneous
  Country: US (occurrence: US)
  Receive Date: 20160824
  Receipt Date: 20160902
  Transmission Date: 20161109
  Serious: Yes (Other)
  Sender: FDA-Public Use
  Company Number: US-TEVA-687292ACC

PATIENT
  Age: 30 Year
  Sex: Female
  Weight: 84.44 kg

DRUGS (2)
  1. PARAGARD T 380A [Suspect]
     Active Substance: COPPER
     Indication: CONTRACEPTION
     Dates: start: 20160121, end: 20160817
  2. PARNATE [Concomitant]
     Active Substance: TRANYLCYPROMINE SULFATE
     Indication: BIPOLAR DISORDER

REACTIONS (5)
  - Device dislocation [Recovered/Resolved]
  - Complication associated with device [Unknown]
  - Device expulsion [Recovered/Resolved]
  - Abdominal pain lower [Unknown]
  - Device breakage [Recovered/Resolved]

NARRATIVE: CASE EVENT DATE: 20160813
